FAERS Safety Report 18525497 (Version 4)
Quarter: 2020Q4

REPORT INFORMATION
  Report Type: Report from Study
  Country: CN (occurrence: CN)
  Receive Date: 20201120
  Receipt Date: 20201209
  Transmission Date: 20210114
  Serious: Yes (Hospitalization)
  Sender: FDA-Public Use
  Company Number: CN-ROCHE-2715675

PATIENT
  Age: 57 Year
  Sex: Male
  Weight: 62.5 kg

DRUGS (3)
  1. ENTECAVIR. [Concomitant]
     Active Substance: ENTECAVIR
  2. ATEZOLIZUMAB. [Suspect]
     Active Substance: ATEZOLIZUMAB
     Indication: HEPATOCELLULAR CARCINOMA
     Dosage: ON 09/OCT/2020 RECEIVED MOST RECENT DOSE OF ATEZOLIZUMAB PRIOR TO EVENT.
     Route: 042
     Dates: start: 20201009
  3. XL184 [Suspect]
     Active Substance: CABOZANTINIB
     Indication: HEPATOCELLULAR CARCINOMA
     Dosage: ON 26/OCT/2020 RECEIVED MOST RECENT DOSE OF COBOZANTINIB PRIOR TO EVENT.
     Route: 048
     Dates: start: 20201009

REACTIONS (1)
  - Demyelination [Recovering/Resolving]

NARRATIVE: CASE EVENT DATE: 20201026
